FAERS Safety Report 10479410 (Version 7)
Quarter: 2014Q4

REPORT INFORMATION
  Report Type: Report from Study
  Country: US (occurrence: US)
  Receive Date: 20140926
  Receipt Date: 20141027
  Transmission Date: 20150528
  Serious: Yes (Hospitalization)
  Sender: FDA-Public Use
  Company Number: US-MERCK-1408USA013873

PATIENT
  Age: 60 Year
  Sex: Male
  Weight: 113.2 kg

DRUGS (20)
  1. ALBUTEROL SULFATE. [Concomitant]
     Active Substance: ALBUTEROL SULFATE
     Indication: DYSPNOEA
     Dosage: TOTAL DAILY DOSE 6 PUFF, TID
     Route: 055
     Dates: start: 20090101
  2. ADVAIR HFA [Concomitant]
     Active Substance: FLUTICASONE PROPIONATE\SALMETEROL XINAFOATE
     Indication: DYSPNOEA
     Dosage: TOTAL DAILY DOSE 2 PUFF, BID
     Route: 054
     Dates: start: 20090101
  3. LEVOTHYROXINE SODIUM. [Concomitant]
     Active Substance: LEVOTHYROXINE SODIUM
     Indication: HYPOTHYROIDISM
     Dosage: TOTAL DAILY DOSE 10 MG, EVERY DAY
     Route: 048
     Dates: start: 20040101
  4. SERTRALINE HYDROCHLORIDE. [Concomitant]
     Active Substance: SERTRALINE HYDROCHLORIDE
     Dosage: TOTAL DAILY DOSE 75MG, EVERY DAY
     Route: 048
     Dates: start: 20120227
  5. CLONAZEPAM. [Concomitant]
     Active Substance: CLONAZEPAM
     Indication: ANXIETY
     Dosage: TOTAL DAILY DOSE 0.5 MG, PRN
     Route: 048
     Dates: start: 20130101
  6. FERROUS SULFATE [Concomitant]
     Active Substance: FERROUS SULFATE\FERROUS SULFATE, DRIED
     Indication: ANAEMIA
     Dosage: TOTAL DAILY DOSE 1 TABLET, EVERY DAY, STRENGTH 325 TABLET
     Route: 048
     Dates: start: 20040101
  7. PEMBROLIZUMAB. [Suspect]
     Active Substance: PEMBROLIZUMAB
     Dosage: 10 MG/KG, QOW
     Route: 042
     Dates: start: 20140805, end: 20140805
  8. ENOXAPARIN SODIUM. [Concomitant]
     Active Substance: ENOXAPARIN SODIUM
     Indication: THROMBOSIS PROPHYLAXIS
     Dosage: TOTAL DAILY DOSE 200 SYRINGE, BID, STRENGTH: 100 SYRINGE
     Route: 058
     Dates: start: 20131201
  9. PANTOPRAZOLE [Concomitant]
     Active Substance: PANTOPRAZOLE SODIUM
     Indication: GASTROOESOPHAGEAL REFLUX DISEASE
     Dosage: TOTAL DAILY DOSE 40 MG, ONCE
     Route: 048
     Dates: start: 20131201
  10. SULFAMETHOXAZOLE (+) TRIMETHOPRIM [Concomitant]
     Active Substance: SULFAMETHOXAZOLE\TRIMETHOPRIM
     Indication: PROPHYLAXIS
     Dosage: 1 TABLET, EVERY DAY
     Route: 048
     Dates: start: 20140301, end: 20140828
  11. PEMBROLIZUMAB. [Suspect]
     Active Substance: PEMBROLIZUMAB
     Indication: NON-HODGKIN^S LYMPHOMA
     Dosage: 10 MG/KG, QOW
     Route: 042
     Dates: start: 20140527, end: 20140722
  12. ALBUTEROL SULFATE. [Concomitant]
     Active Substance: ALBUTEROL SULFATE
     Indication: WHEEZING
  13. RANITIDINE HYDROCHLORIDE. [Concomitant]
     Active Substance: RANITIDINE HYDROCHLORIDE
     Indication: GASTROOESOPHAGEAL REFLUX DISEASE
     Dosage: 300 MG, EVERY DAY
     Route: 048
     Dates: start: 20131201
  14. ACYCLOVIR. [Concomitant]
     Active Substance: ACYCLOVIR
     Indication: INFECTION PROPHYLAXIS
     Dosage: TOTAL DAILY DOSE 1200 MG, TID
     Route: 048
     Dates: start: 20140301
  15. ALBUTEROL SULFATE (+) IPRATROPIUM BROMIDE [Concomitant]
     Active Substance: ALBUTEROL SULFATE\IPRATROPIUM BROMIDE
     Indication: DYSPNOEA
     Dosage: TOTAL DAILY DOSE 6 PUFF, TID, STRENGTH: 0.5 PUFF
     Route: 055
     Dates: start: 20090101
  16. SERTRALINE HYDROCHLORIDE. [Concomitant]
     Active Substance: SERTRALINE HYDROCHLORIDE
     Indication: DEPRESSION
     Dosage: TOTAL DAILY DOSE 75MG, EVERY DAY
     Route: 048
     Dates: start: 20100101
  17. SULFAMETHOXAZOLE (+) TRIMETHOPRIM [Concomitant]
     Active Substance: SULFAMETHOXAZOLE\TRIMETHOPRIM
     Dosage: 1 TABLET, EVERY DAY
     Route: 048
     Dates: start: 20140302, end: 20140828
  18. CYANOCOBALAMIN. [Concomitant]
     Active Substance: CYANOCOBALAMIN
     Indication: ANAEMIA
     Dosage: TOTAL DAILY DOSE 1 TABLET, QD, STRENGTH: 1000 TABLET
     Route: 048
     Dates: start: 20040101
  19. DIPHENHYDRAMINE HYDROCHLORIDE. [Concomitant]
     Active Substance: DIPHENHYDRAMINE HYDROCHLORIDE
     Indication: HYPERSENSITIVITY
     Dosage: TOTAL DAILY DOSE 1 CAPSULE, QD, STRENGTH: 25 CAPSULE
     Route: 048
     Dates: start: 20140301
  20. SENNOSIDES. [Concomitant]
     Active Substance: SENNOSIDES
     Indication: CONSTIPATION
     Dosage: TOTAL DAILY DOSE 1 TABLET, BID, STRENGTH: 8.6 TABLET
     Route: 048
     Dates: start: 20040101

REACTIONS (1)
  - Vertigo [Recovered/Resolved]

NARRATIVE: CASE EVENT DATE: 20140818
